FAERS Safety Report 7294180-0 (Version None)
Quarter: 2011Q1

REPORT INFORMATION
  Report Type: 
  Country: None (occurrence: None)
  Receive Date: 20110215
  Receipt Date: 20110201
  Transmission Date: 20110831
  Serious: Yes (Death, Hospitalization)
  Sender: FDA-Public Use
  Company Number: JP-CELGENEUS-087-21880-11020188

PATIENT
  Sex: Female

DRUGS (3)
  1. THYRADIN S [Concomitant]
     Route: 048
     Dates: start: 20101104, end: 20101130
  2. REVLIMID [Suspect]
     Indication: MULTIPLE MYELOMA
     Route: 048
     Dates: start: 20101104, end: 20101125
  3. LENADEX [Suspect]
     Indication: MULTIPLE MYELOMA
     Route: 048
     Dates: start: 20101104, end: 20101123

REACTIONS (5)
  - HAEMORRHAGE [None]
  - HAEMATOMA [None]
  - INTERSTITIAL LUNG DISEASE [None]
  - PNEUMONIA [None]
  - THROMBOCYTOPENIA [None]
